FAERS Safety Report 11002039 (Version 1)
Quarter: 2015Q2

REPORT INFORMATION
  Report Type: Spontaneous
  Country: DE (occurrence: DE)
  Receive Date: 20150408
  Receipt Date: 20150408
  Transmission Date: 20150821
  Serious: Yes (Other)
  Sender: FDA-Public Use
  Company Number: DE-TEVA-551794GER

PATIENT
  Age: 50 Year
  Sex: Male

DRUGS (1)
  1. CLINDAMYCIN [Suspect]
     Active Substance: CLINDAMYCIN\CLINDAMYCIN PHOSPHATE
     Indication: PERIODONTITIS
     Dosage: 3 DOSAGE FORMS DAILY;
     Route: 065

REACTIONS (2)
  - Hemiplegia [Unknown]
  - Monoplegia [Unknown]

NARRATIVE: CASE EVENT DATE: 20150112
